FAERS Safety Report 6195326-8 (Version None)
Quarter: 2009Q2

REPORT INFORMATION
  Report Type: 
  Country: None (occurrence: None)
  Receive Date: 20090519
  Receipt Date: 20090511
  Transmission Date: 20091009
  Serious: Yes (Hospitalization, Other)
  Sender: FDA-Public Use
  Company Number: US-PFIZER INC-2009161856

PATIENT
  Sex: Male
  Weight: 74.83 kg

DRUGS (5)
  1. CELEBREX [Suspect]
     Indication: INTERVERTEBRAL DISC PROTRUSION
     Dosage: 200 MG, 2X/DAY
  2. PARAFON FORTE [Concomitant]
     Dosage: UNK
  3. HYDROCODONE BITARTRATE [Concomitant]
     Dosage: UNK
  4. ZANAFLEX [Concomitant]
     Dosage: UNK
  5. TYLENOL [Concomitant]
     Dosage: UNK

REACTIONS (3)
  - GASTROINTESTINAL HAEMORRHAGE [None]
  - MELAENA [None]
  - POISONING [None]
